FAERS Safety Report 6137518-X (Version None)
Quarter: 2009Q1

REPORT INFORMATION
  Report Type: 
  Country: None (occurrence: None)
  Receive Date: 20090326
  Receipt Date: 20090313
  Transmission Date: 20090719
  Serious: Yes (Hospitalization)
  Sender: FDA-Public Use
  Company Number: VAL_00240_2009

PATIENT
  Sex: Male

DRUGS (15)
  1. CALCITRIOL [Suspect]
     Indication: DRUG USE FOR UNKNOWN INDICATION
     Dosage: (1 ?G BID ORAL)
     Route: 048
     Dates: end: 20080902
  2. SERESTA (SERESTA - OXAZEPAM) ) (NOT SPECIFIED) [Suspect]
     Indication: DRUG USE FOR UNKNOWN INDICATION
     Dosage: (1 DF QD ORAL)
     Route: 048
     Dates: end: 20080902
  3. DIAMICRON (DIAMICRON - GLICLAZIDE) 30 MG (NOT SPECIFIED) [Suspect]
     Indication: TYPE 2 DIABETES MELLITUS
     Dosage: (30 MG QD ORAL)
     Route: 048
     Dates: end: 20080902
  4. CALCIUM CARBONATE W/COLECALCIFEROL (CALCIUM CARBONATE/COLECALCIFEROL) [Suspect]
     Indication: DRUG USE FOR UNKNOWN INDICATION
     Dosage: (1 DF BID ORAL)
     Dates: end: 20080902
  5. TORSEMIDE [Concomitant]
  6. CALCIUM ACETATE [Concomitant]
  7. DIALVIT [Concomitant]
  8. NEPHROTRANS [Concomitant]
  9. APROVEL [Concomitant]
  10. CONCOR /00802602/ [Concomitant]
  11. ASPIRIN [Concomitant]
  12. SORTIS /01326102/ [Concomitant]
  13. PANTOZOL /01263202/ [Concomitant]
  14. NEURONTIN [Concomitant]
  15. KEPPRA [Concomitant]

REACTIONS (8)
  - CONFUSIONAL STATE [None]
  - DELIRIUM [None]
  - HYPERCALCAEMIA [None]
  - HYPERKALAEMIA [None]
  - HYPOGLYCAEMIA [None]
  - OVERDOSE [None]
  - PERIPHERAL SENSORY NEUROPATHY [None]
  - TREMOR [None]
